FAERS Safety Report 20213971 (Version 1)
Quarter: 2021Q4

REPORT INFORMATION
  Report Type: Spontaneous
  Country: US (occurrence: US)
  Receive Date: 20211221
  Receipt Date: 20211221
  Transmission Date: 20220303
  Serious: Yes (Other)
  Sender: FDA-Public Use
  Company Number: US-PARI RESPIRATORY EQUIPMENT, INC.-2021PAR00069

PATIENT
  Sex: Male
  Weight: 63.401 kg

DRUGS (1)
  1. KITABIS PAK [Suspect]
     Active Substance: TOBRAMYCIN
     Indication: Bronchiectasis
     Dosage: 1 AMPULE (300 MG) VIA NEBULIZER, EVERY 12 HOURS 28 DAYS ON/28 DAYS
     Dates: start: 2021

REACTIONS (2)
  - Pneumonia bacterial [Unknown]
  - Off label use [Unknown]

NARRATIVE: CASE EVENT DATE: 20210101
